FAERS Safety Report 11008515 (Version 1)
Quarter: 2015Q2

REPORT INFORMATION
  Report Type: Spontaneous
  Country: US (occurrence: US)
  Receive Date: 20150410
  Receipt Date: 20150410
  Transmission Date: 20150821
  Serious: No
  Sender: FDA-Public Use
  Company Number: US-TEVA-536979USA

PATIENT
  Age: 71 Year
  Sex: Female

DRUGS (1)
  1. LEVALBUTEROL [Suspect]
     Active Substance: LEVALBUTEROL
     Indication: BRONCHOSPASM

REACTIONS (4)
  - Cough [Unknown]
  - Dysphonia [Unknown]
  - Feeling abnormal [Unknown]
  - Chest discomfort [Unknown]

NARRATIVE: CASE EVENT DATE: 201501
